FAERS Safety Report 26200705 (Version 1)
Quarter: 2025Q4

REPORT INFORMATION
  Report Type: Spontaneous
  Country: US (occurrence: US)
  Receive Date: 20251226
  Receipt Date: 20251226
  Transmission Date: 20260117
  Serious: Yes (Death, Other)
  Sender: HIKMA
  Company Number: US-HIKMA PHARMACEUTICALS USA INC.-US-H14001-25-13398

PATIENT
  Age: 31 Year
  Sex: Male

DRUGS (1)
  1. METHAMPHETAMINE [Suspect]
     Active Substance: METHAMPHETAMINE
     Indication: Product used for unknown indication
     Dosage: UNK
     Route: 065

REACTIONS (8)
  - Death [Fatal]
  - Road traffic accident [Unknown]
  - Unresponsive to stimuli [Recovered/Resolved]
  - Screaming [Unknown]
  - Spinal fracture [Unknown]
  - Paralysis [Unknown]
  - Drug abuse [Unknown]
  - Legal problem [Unknown]

NARRATIVE: CASE EVENT DATE: 20201201
